FAERS Safety Report 6426457-2 (Version None)
Quarter: 2009Q4

REPORT INFORMATION
  Report Type: 
  Country: None (occurrence: None)
  Receive Date: 20091104
  Receipt Date: 20091030
  Transmission Date: 20100525
  Serious: Yes (Disabling, Other)
  Sender: FDA-Public Use
  Company Number: GB-ASTRAZENECA-2009SE23513

PATIENT
  Age: 65 Year
  Sex: Male
  Weight: 80 kg

DRUGS (5)
  1. CRESTOR [Suspect]
     Indication: HYPERLIPIDAEMIA
     Route: 048
     Dates: start: 20040224, end: 20040228
  2. CLOPIDOGREL [Concomitant]
     Route: 048
  3. FLOMAX [Concomitant]
     Route: 065
  4. IRBESARTAN [Concomitant]
     Route: 065
  5. PANTOPRAZOLE [Concomitant]
     Route: 048

REACTIONS (4)
  - ASTHENIA [None]
  - DIZZINESS [None]
  - GAIT DISTURBANCE [None]
  - MYALGIA [None]
